FAERS Safety Report 15220949 (Version 2)
Quarter: 2019Q2

REPORT INFORMATION
  Report Type: Spontaneous
  Country: AU (occurrence: AU)
  Receive Date: 20180731
  Receipt Date: 20190621
  Transmission Date: 20190711
  Serious: Yes (Hospitalization, Other)
  Sender: FDA-Public Use
  Company Number: AU-009507513-1705AUS000259

PATIENT
  Sex: Male

DRUGS (2)
  1. BCG LIVE [Suspect]
     Active Substance: BACILLUS CALMETTE-GUERIN SUBSTRAIN TICE LIVE ANTIGEN
     Indication: BLADDER CANCER
     Dosage: SIX TIMES OVER 6 WEEKS (TOTAL 12 TREATMENTS)
     Route: 043
     Dates: start: 2016
  2. KEYTRUDA [Suspect]
     Active Substance: PEMBROLIZUMAB
     Dosage: UNK
     Dates: start: 2017

REACTIONS (14)
  - Hypothyroidism [Unknown]
  - Lethargy [Unknown]
  - Pneumonia aspiration [Unknown]
  - Postoperative wound complication [Unknown]
  - Scrotal swelling [Unknown]
  - Adverse event [Unknown]
  - Weight decreased [Unknown]
  - Psoriasis [Unknown]
  - Endocrine disorder [Unknown]
  - Hypotension [Unknown]
  - Drug ineffective [Unknown]
  - Post procedural complication [Unknown]
  - Consciousness fluctuating [Unknown]
  - Intestinal obstruction [Unknown]

NARRATIVE: CASE EVENT DATE: 2016
